FAERS Safety Report 4633011-1 (Version None)
Quarter: 2005Q2

REPORT INFORMATION
  Report Type: 
  Country: None (occurrence: None)
  Receive Date: 20050412
  Receipt Date: 20050329
  Transmission Date: 20051028
  Serious: Yes (Other)
  Sender: FDA-Public Use
  Company Number: JP-JNJFOC-20050306996

PATIENT
  Sex: Male

DRUGS (4)
  1. ITRIZOLE [Suspect]
     Indication: ONYCHOMYCOSIS
     Route: 049
  2. MAO-BUSHI-SAISHIN-TO [Suspect]
     Route: 049
  3. FAMOTIDINE [Concomitant]
     Indication: GASTRITIS
     Route: 049
  4. SULPRIDE [Concomitant]
     Indication: GASTRITIS
     Route: 049

REACTIONS (11)
  - ANOREXIA [None]
  - BLOOD PRESSURE INCREASED [None]
  - BRADYCARDIA [None]
  - CARDIOMEGALY [None]
  - CHEST PAIN [None]
  - DECREASED APPETITE [None]
  - DIZZINESS [None]
  - HEADACHE [None]
  - HOT FLUSH [None]
  - MALAISE [None]
  - NAUSEA [None]
